FAERS Safety Report 4364209-8 (Version None)
Quarter: 2004Q2

REPORT INFORMATION
  Report Type: 
  Country: None (occurrence: None)
  Receive Date: 20040519
  Receipt Date: 20040511
  Transmission Date: 20050107
  Serious: Yes (Hospitalization)
  Sender: FDA-Public Use
  Company Number: S04-USA-02760-01

PATIENT
  Age: 35 Year
  Sex: Male

DRUGS (1)
  1. LEXAPRO [Suspect]
     Indication: DYSTHYMIC DISORDER
     Dosage: 10 MG QD PO
     Route: 048
     Dates: start: 20040501, end: 20040504

REACTIONS (3)
  - ACUTE PSYCHOSIS [None]
  - OBSESSIVE THOUGHTS [None]
  - SUICIDAL IDEATION [None]
